FAERS Safety Report 14304271 (Version 1)
Quarter: 2017Q4

REPORT INFORMATION
  Report Type: Spontaneous
  Country: GB (occurrence: GB)
  Receive Date: 20171219
  Receipt Date: 20171219
  Transmission Date: 20180321
  Serious: Yes (Death, Hospitalization, Other)
  Sender: FDA-Public Use
  Company Number: GB-OTSUKA-DJ20106597

PATIENT
  Age: 40 Year
  Sex: Male
  Weight: 152.4 kg

DRUGS (4)
  1. PROCYCLIDINE HCL [Concomitant]
     Active Substance: PROCYCLIDINE HYDROCHLORIDE
     Indication: PRODUCT USED FOR UNKNOWN INDICATION
     Dosage: 5 MG, UNK
     Route: 065
  2. FLUPENTHIXOL [Suspect]
     Active Substance: FLUPENTIXOL DECANOATE
     Indication: SCHIZOPHRENIA
     Dosage: UNK
     Route: 048
     Dates: start: 2005, end: 200909
  3. FLUPENTHIXOL [Suspect]
     Active Substance: FLUPENTIXOL DECANOATE
     Indication: SCHIZOPHRENIA
     Dosage: 600 MG, UNK
     Route: 030
     Dates: start: 2005, end: 200909
  4. ABILIFY [Suspect]
     Active Substance: ARIPIPRAZOLE
     Indication: SCHIZOPHRENIA
     Dosage: 30 MG, UNK
     Route: 048
     Dates: start: 2005, end: 200909

REACTIONS (7)
  - Congestive cardiomyopathy [Fatal]
  - Renal failure [Not Recovered/Not Resolved]
  - Pulmonary embolism [Fatal]
  - Chest pain [Not Recovered/Not Resolved]
  - Pneumonia [Fatal]
  - Dyspnoea [Not Recovered/Not Resolved]
  - Respiratory distress [Not Recovered/Not Resolved]
